FAERS Safety Report 5353026-8 (Version None)
Quarter: 2007Q2

REPORT INFORMATION
  Report Type: 
  Country: None (occurrence: None)
  Receive Date: 20070606
  Receipt Date: 20070530
  Transmission Date: 20071010
  Serious: Yes (Hospitalization)
  Sender: FDA-Public Use
  Company Number: THQ2007A00429

PATIENT
  Age: 94 Year
  Sex: Female

DRUGS (3)
  1. LANSOPRAZOLE [Suspect]
     Dosage: PER ORAL
     Route: 048
     Dates: start: 20070301, end: 20070416
  2. PAROXETINE HCL [Suspect]
     Dosage: PER ORAL
     Route: 048
     Dates: start: 20070410, end: 20070416
  3. NAPROXEN SODIUM [Suspect]
     Dosage: 1.1 G PER ORAL
     Route: 048
     Dates: start: 20070412, end: 20070416

REACTIONS (15)
  - ACIDOSIS [None]
  - AGRANULOCYTOSIS [None]
  - ANAEMIA [None]
  - AXILLARY PAIN [None]
  - CHILLS [None]
  - DISSEMINATED INTRAVASCULAR COAGULATION [None]
  - FALL [None]
  - HAEMORRHAGE [None]
  - HYPOTENSION [None]
  - MALAISE [None]
  - NEUTROPENIA [None]
  - OVARIAN CYST [None]
  - PURULENCE [None]
  - RENAL FAILURE ACUTE [None]
  - SHOCK [None]
